FAERS Safety Report 15268169 (Version 1)
Quarter: 2018Q3

REPORT INFORMATION
  Report Type: Spontaneous
  Country: PT (occurrence: PT)
  Receive Date: 20180812
  Receipt Date: 20180812
  Transmission Date: 20181010
  Serious: Yes (Other)
  Sender: FDA-Public Use
  Company Number: PT-TEVA-2018-PT-938995

PATIENT
  Sex: Female

DRUGS (2)
  1. PRAVASTATIN. [Suspect]
     Active Substance: PRAVASTATIN
     Indication: BLOOD CHOLESTEROL
     Route: 065
  2. LETROZOLE. [Suspect]
     Active Substance: LETROZOLE
     Indication: PRODUCT USED FOR UNKNOWN INDICATION
     Route: 065

REACTIONS (10)
  - Mucosal dryness [Unknown]
  - Cataract [Unknown]
  - Dry eye [Unknown]
  - Mood altered [Unknown]
  - Dry skin [Unknown]
  - Hypersensitivity [Unknown]
  - Dry mouth [Unknown]
  - Hair disorder [Unknown]
  - Osteoporosis [Unknown]
  - Drug ineffective [Unknown]
